FAERS Safety Report 19105421 (Version 2)
Quarter: 2021Q2

REPORT INFORMATION
  Report Type: Report from Study
  Country: None (occurrence: GR)
  Receive Date: 20210408
  Receipt Date: 20210415
  Transmission Date: 20210717
  Serious: Yes (Hospitalization)
  Sender: FDA-Public Use
  Company Number: GR-ABBVIE-21K-066-3846335-00

PATIENT
  Age: 56 Year
  Sex: Male
  Weight: 80 kg

DRUGS (6)
  1. NEUPRO [Concomitant]
     Active Substance: ROTIGOTINE
     Indication: PARKINSON^S DISEASE
     Route: 062
  2. DUODOPA [Suspect]
     Active Substance: CARBIDOPA\LEVODOPA
     Indication: PARKINSON^S DISEASE
     Dosage: MORNING DOSE: 10.0 ML; CONTINUOUS RATE: 2.8 ML/H; EXTRA DOSE: 1.0 ML
     Route: 050
     Dates: start: 20210330, end: 20210405
  3. REMERON [Concomitant]
     Active Substance: MIRTAZAPINE
     Indication: INSOMNIA
     Dosage: 0.5 OF UNKNOWN UNIT DOSE, ONCE A DAY
     Route: 048
  4. DUODOPA [Suspect]
     Active Substance: CARBIDOPA\LEVODOPA
     Dosage: MORNING DOSE: 10.0 ML; CONTINUOUS RATE: 3.0 ML/H; EXTRA DOSE: 1.0 ML
     Route: 050
     Dates: start: 20210405, end: 202104
  5. DUODOPA [Suspect]
     Active Substance: CARBIDOPA\LEVODOPA
     Dosage: MORNING DOSE: 10.0 ML; CONTINUOUS RATE: 3.4 ML/H; EXTRA DOSE: 1.0 ML
     Route: 050
     Dates: start: 202104
  6. STALEVO [Concomitant]
     Active Substance: CARBIDOPA\ENTACAPONE\LEVODOPA
     Indication: PARKINSON^S DISEASE
     Dosage: (175 + 43.75 + 200) MG
     Route: 048

REACTIONS (3)
  - Malaise [Unknown]
  - Stoma site pain [Recovering/Resolving]
  - Musculoskeletal stiffness [Not Recovered/Not Resolved]

NARRATIVE: CASE EVENT DATE: 2021
